FAERS Safety Report 25974237 (Version 1)
Quarter: 2025Q4

REPORT INFORMATION
  Report Type: Spontaneous
  Country: US (occurrence: None)
  Receive Date: 20251028
  Receipt Date: 20251028
  Transmission Date: 20260118
  Serious: Yes (Death)
  Sender: FDA-CTU
  Company Number: None

PATIENT
  Age: 75 Year
  Sex: Male
  Weight: 46 kg

DRUGS (2)
  1. PEMBROLIZUMAB [Suspect]
     Active Substance: PEMBROLIZUMAB
     Indication: Myocarditis
     Dosage: 200-400 MG INTRAVENOUS
     Route: 042
     Dates: start: 20250306, end: 20250731
  2. PEMBROLIZUMAB [Suspect]
     Active Substance: PEMBROLIZUMAB
     Indication: Pneumonitis

REACTIONS (4)
  - Angina pectoris [None]
  - Hypotension [None]
  - Palpitations [None]
  - Respiratory depression [None]

NARRATIVE: CASE EVENT DATE: 20250914
